FAERS Safety Report 4623040-6 (Version None)
Quarter: 2005Q1

REPORT INFORMATION
  Report Type: 
  Country: None (occurrence: None)
  Receive Date: 20050107
  Receipt Date: 20041016
  Transmission Date: 20050727
  Serious: No
  Sender: FDA-Public Use
  Company Number: 235239K04USA

PATIENT
  Sex: Female

DRUGS (2)
  1. REBIF [Suspect]
     Indication: MULTIPLE SCLEROSIS
  2. SOLUMEDROL (METHYLPREDNISOLONE) (METHYLPREDNISOLONE) [Concomitant]

REACTIONS (3)
  - CONFUSIONAL STATE [None]
  - MULTIPLE SCLEROSIS [None]
  - MULTIPLE SCLEROSIS RELAPSE [None]
